FAERS Safety Report 13521403 (Version 1)
Quarter: 2017Q2

REPORT INFORMATION
  Report Type: Report from Study
  Country: BR (occurrence: BR)
  Receive Date: 20170508
  Receipt Date: 20170508
  Transmission Date: 20170830
  Serious: Yes (Other)
  Sender: FDA-Public Use
  Company Number: PHHY2017BR065690

PATIENT
  Sex: Female
  Weight: 85 kg

DRUGS (3)
  1. SIMVASTATIN. [Suspect]
     Active Substance: SIMVASTATIN
     Indication: BLOOD CHOLESTEROL
  2. SIMVASTATIN. [Suspect]
     Active Substance: SIMVASTATIN
     Indication: HEPATIC STEATOSIS
     Dosage: 20 MG, QD
     Route: 048
  3. AMLODIPINE [Concomitant]
     Active Substance: AMLODIPINE BESYLATE
     Indication: PRODUCT USED FOR UNKNOWN INDICATION
     Dosage: 2.5 MG, UNK
     Route: 065

REACTIONS (3)
  - Hypersensitivity [Unknown]
  - Systemic lupus erythematosus [Unknown]
  - Pruritus [Unknown]
